FAERS Safety Report 13738742 (Version 1)
Quarter: 2017Q3

REPORT INFORMATION
  Report Type: Spontaneous
  Country: US (occurrence: US)
  Receive Date: 20170710
  Receipt Date: 20170710
  Transmission Date: 20171127
  Serious: No
  Sender: FDA-Public Use
  Company Number: US-SAOL THERAPEUTICS-2017SAO00302

PATIENT
  Sex: Male

DRUGS (1)
  1. BACLOFEN. [Suspect]
     Active Substance: BACLOFEN
     Indication: MUSCLE SPASTICITY
     Dosage: 420.2 ?G, \DAY
     Route: 037
     Dates: start: 2014

REACTIONS (3)
  - Malaise [Recovered/Resolved]
  - Somnolence [Recovered/Resolved]
  - Medical device site papule [Recovered/Resolved]

NARRATIVE: CASE EVENT DATE: 201701
